FAERS Safety Report 5832204-5 (Version None)
Quarter: 2008Q3

REPORT INFORMATION
  Report Type: 
  Country: None (occurrence: None)
  Receive Date: 20080804
  Receipt Date: 20080723
  Transmission Date: 20090109
  Serious: Yes (Other)
  Sender: FDA-Public Use
  Company Number: JP-SANOFI-SYNTHELABO-A01200808964

PATIENT
  Age: 60 Year
  Sex: Male

DRUGS (3)
  1. ISOVORIN [Concomitant]
     Dosage: UNK
     Route: 041
     Dates: start: 20071001, end: 20071001
  2. ELPLAT [Suspect]
     Indication: RECTAL CANCER
     Dosage: UNK
     Route: 041
     Dates: start: 20071001, end: 20071001
  3. FLUOROURACIL [Concomitant]
     Dosage: IV BOLUS THEN CONTINUOUS INFUSION UNK
     Route: 042
     Dates: start: 20071001, end: 20071001

REACTIONS (1)
  - GUILLAIN-BARRE SYNDROME [None]
